FAERS Safety Report 20663621 (Version 1)
Quarter: 2022Q2

REPORT INFORMATION
  Report Type: Spontaneous
  Country: AT (occurrence: AT)
  Receive Date: 20220401
  Receipt Date: 20220401
  Transmission Date: 20220721
  Serious: Yes (Other)
  Sender: FDA-Public Use
  Company Number: AT-NOVARTISPH-NVSC2022AT072116

PATIENT
  Age: 49 Year
  Sex: Female

DRUGS (3)
  1. CARBOPLATIN [Suspect]
     Active Substance: CARBOPLATIN
     Indication: Non-small cell lung cancer stage IV
     Dosage: AUC 6 MG/ML/MIN FOUR CYCLES
     Route: 042
  2. PACLITAXEL [Suspect]
     Active Substance: PACLITAXEL
     Indication: Non-small cell lung cancer stage IV
     Dosage: 200 MG/M2
     Route: 042
  3. ATEZOLIZUMAB [Suspect]
     Active Substance: ATEZOLIZUMAB
     Indication: Non-small cell lung cancer stage IV
     Dosage: 1200 MG, Q3W
     Route: 042

REACTIONS (4)
  - Alopecia [Unknown]
  - Nausea [Recovered/Resolved]
  - Therapy partial responder [Unknown]
  - Product use in unapproved indication [Unknown]
